FAERS Safety Report 8956166 (Version 1)
Quarter: 2012Q4

REPORT INFORMATION
  Report Type: 
  Country: US (occurrence: US)
  Receive Date: 20121210
  Receipt Date: 20121210
  Transmission Date: 20130627
  Serious: Yes (Other)
  Sender: FDA-Public Use
  Company Number: US-PFIZER INC-2012310057

PATIENT
  Age: 45 Year
  Sex: Female
  Weight: 77.1 kg

DRUGS (5)
  1. CHANTIX [Suspect]
     Indication: SMOKING CESSATION THERAPY
     Dosage: 0.5 mg, 1x/day
     Route: 048
  2. CHANTIX [Suspect]
     Dosage: 0.5 mg, 1x/day
     Route: 048
     Dates: start: 201211, end: 201211
  3. CHANTIX [Suspect]
     Dosage: 1 mg, 2x/day
     Route: 048
     Dates: start: 201211, end: 20121204
  4. ARMOUR THYROID [Concomitant]
     Indication: THYROID ACTIVITY DECREASED
     Dosage: UNK
  5. CONCERTA [Concomitant]
     Dosage: UNK

REACTIONS (9)
  - Suicidal ideation [Recovered/Resolved]
  - Agitation [Recovered/Resolved]
  - Anxiety [Recovered/Resolved]
  - Delusional perception [Recovered/Resolved]
  - Paranoia [Recovered/Resolved]
  - Hostility [Recovered/Resolved]
  - Anger [Recovered/Resolved]
  - Abnormal dreams [Recovered/Resolved]
  - Nausea [Recovered/Resolved]
